FAERS Safety Report 13716065 (Version 2)
Quarter: 2017Q4

REPORT INFORMATION
  Report Type: Spontaneous
  Country: US (occurrence: US)
  Receive Date: 20170705
  Receipt Date: 20171124
  Transmission Date: 20180320
  Serious: Yes (Other)
  Sender: FDA-Public Use
  Company Number: US-ASTRAZENECA-2017SE67380

PATIENT
  Age: 21882 Day
  Sex: Female
  Weight: 126.1 kg

DRUGS (16)
  1. DIVALPROEX [Concomitant]
     Active Substance: DIVALPROEX SODIUM
     Route: 065
     Dates: start: 20101021
  2. LUNESTA [Concomitant]
     Active Substance: ESZOPICLONE
     Route: 065
     Dates: start: 20110831
  3. TRAZODONE [Concomitant]
     Active Substance: TRAZODONE HYDROCHLORIDE
     Route: 065
     Dates: start: 20140807
  4. PANTOPRAZOLE SODIUM. [Concomitant]
     Active Substance: PANTOPRAZOLE SODIUM
     Route: 065
     Dates: start: 20140915
  5. RISPERIDONE. [Concomitant]
     Active Substance: RISPERIDONE
     Route: 065
     Dates: start: 20101015
  6. RAMIPRIL. [Concomitant]
     Active Substance: RAMIPRIL
     Route: 065
     Dates: start: 20101027
  7. HYDROCODONE/ACETAMINOPHEN [Concomitant]
     Active Substance: ACETAMINOPHEN\HYDROCODONE
     Dosage: 5-32S MG
     Route: 065
     Dates: start: 20131018
  8. NAPROXEN. [Concomitant]
     Active Substance: NAPROXEN
     Route: 065
     Dates: start: 20140411
  9. MUPIROCIN. [Concomitant]
     Active Substance: MUPIROCIN
     Route: 065
     Dates: start: 20140707
  10. DOXEPIN HYDROCHLORIDE. [Concomitant]
     Active Substance: DOXEPIN HYDROCHLORIDE
     Route: 065
     Dates: start: 20140807
  11. GABAPENTIN. [Concomitant]
     Active Substance: GABAPENTIN
     Route: 065
     Dates: start: 20150408
  12. GLIMEPIRIDE. [Concomitant]
     Active Substance: GLIMEPIRIDE
     Route: 065
     Dates: start: 20101027
  13. NEXIUM [Suspect]
     Active Substance: ESOMEPRAZOLE MAGNESIUM
     Indication: GASTRIC PH DECREASED
     Route: 048
     Dates: start: 2010, end: 2017
  14. NEXIUM [Suspect]
     Active Substance: ESOMEPRAZOLE MAGNESIUM
     Indication: GASTRIC PH DECREASED
     Route: 048
     Dates: start: 20101012
  15. METOPROLOL. [Concomitant]
     Active Substance: METOPROLOL
     Route: 065
     Dates: start: 20110831
  16. OLANZAPINE. [Concomitant]
     Active Substance: OLANZAPINE
     Route: 065
     Dates: start: 20150804

REACTIONS (5)
  - Renal failure [Unknown]
  - Acute kidney injury [Unknown]
  - End stage renal disease [Unknown]
  - Tubulointerstitial nephritis [Unknown]
  - Chronic kidney disease [Unknown]

NARRATIVE: CASE EVENT DATE: 20150721
